FAERS Safety Report 22282760 (Version 2)
Quarter: 2023Q2

REPORT INFORMATION
  Report Type: Spontaneous
  Country: BR (occurrence: BR)
  Receive Date: 20230504
  Receipt Date: 20230601
  Transmission Date: 20230721
  Serious: Yes (Other)
  Sender: FDA-Public Use
  Company Number: BR-GLAXOSMITHKLINE-BR2023AMR062297

PATIENT

DRUGS (1)
  1. FLUTICASONE FUROATE\VILANTEROL TRIFENATATE [Suspect]
     Active Substance: FLUTICASONE FUROATE\VILANTEROL TRIFENATATE
     Indication: Asthma
     Dosage: UNK, 1D,100/25 MCG X 30 D CC,1 INHALATION ONCE A DAY AT NIGHT
     Route: 055

REACTIONS (10)
  - Arrhythmia [Recovered/Resolved]
  - Tachycardia [Recovered/Resolved]
  - Headache [Not Recovered/Not Resolved]
  - Cough [Unknown]
  - Oropharyngeal pain [Unknown]
  - Dizziness [Unknown]
  - Tinnitus [Unknown]
  - Fatigue [Unknown]
  - Catarrh [Unknown]
  - Dysphonia [Unknown]

NARRATIVE: CASE EVENT DATE: 20220601
